FAERS Safety Report 17144342 (Version 1)
Quarter: 2019Q4

REPORT INFORMATION
  Report Type: Spontaneous
  Country: FI (occurrence: FI)
  Receive Date: 20191212
  Receipt Date: 20191212
  Transmission Date: 20200122
  Serious: Yes (Other)
  Sender: FDA-Public Use
  Company Number: FI-ASTRAZENECA-2019SF74689

PATIENT
  Age: 36 Year
  Sex: Female

DRUGS (3)
  1. KETIPINOR [Suspect]
     Active Substance: QUETIAPINE FUMARATE
     Indication: SLEEP DISORDER
     Route: 048
     Dates: start: 20191016, end: 20191017
  2. VOXRA [Concomitant]
     Active Substance: BUPROPION HYDROCHLORIDE
     Indication: AFFECTIVE DISORDER
     Route: 048
  3. CERAZETTE [Concomitant]
     Indication: ENDOMETRIOSIS
     Route: 048

REACTIONS (6)
  - Nausea [Unknown]
  - Confusional state [Unknown]
  - Headache [Unknown]
  - Intestinal obstruction [Unknown]
  - Hangover [Unknown]
  - Abdominal pain [Unknown]

NARRATIVE: CASE EVENT DATE: 20191017
